FAERS Safety Report 20546577 (Version 1)
Quarter: 2022Q1

REPORT INFORMATION
  Report Type: Spontaneous
  Country: US (occurrence: None)
  Receive Date: 20220303
  Receipt Date: 20220303
  Transmission Date: 20220423
  Serious: Yes (Hospitalization)
  Sender: FDA-Public Use
  Company Number: US-ROCHE-3036190

PATIENT
  Age: 65 Year
  Sex: Male
  Weight: 85 kg

DRUGS (4)
  1. VALCYTE [Suspect]
     Active Substance: VALGANCICLOVIR HYDROCHLORIDE
     Indication: Cytomegalovirus infection
     Dosage: ONGOING : YES
     Route: 065
     Dates: start: 20220107
  2. PREDNISONE [Concomitant]
     Active Substance: PREDNISONE
     Dates: start: 20190125
  3. TACROLIMUS [Concomitant]
     Active Substance: TACROLIMUS
     Dosage: ONGOING: YES
     Dates: start: 20220119
  4. ITACITINIB [Concomitant]
     Active Substance: ITACITINIB
     Indication: Bronchiolitis obliterans syndrome
     Route: 048
     Dates: start: 20210323, end: 20220206

REACTIONS (1)
  - Cytomegalovirus viraemia [Not Recovered/Not Resolved]

NARRATIVE: CASE EVENT DATE: 20220207
